FAERS Safety Report 17300084 (Version 1)
Quarter: 2020Q1

REPORT INFORMATION
  Report Type: Spontaneous
  Country: US (occurrence: US)
  Receive Date: 20200122
  Receipt Date: 20200122
  Transmission Date: 20200409
  Serious: No
  Sender: FDA-Public Use
  Company Number: US-ALLERGAN-1919315US

PATIENT
  Sex: Male

DRUGS (3)
  1. OTHER UNSPECIFIED MEDICATIONS [Concomitant]
     Active Substance: UNSPECIFIED INGREDIENT
  2. RESTASIS [Suspect]
     Active Substance: CYCLOSPORINE
     Indication: DRY EYE
     Dosage: 2 GTT, BID
     Route: 047
  3. UNSPECIFED EYE DROPS [Concomitant]
     Dosage: UNK
     Route: 047

REACTIONS (4)
  - Product container issue [Unknown]
  - Accidental exposure to product [Unknown]
  - Product design issue [Unknown]
  - Product use complaint [Unknown]
